FAERS Safety Report 8383924-2 (Version None)
Quarter: 2012Q2

REPORT INFORMATION
  Report Type: 
  Country: None (occurrence: None)
  Receive Date: 20120524
  Receipt Date: 20120510
  Transmission Date: 20120825
  Serious: Yes (Other)
  Sender: FDA-Public Use
  Company Number: GB-WATSON-2009A-02218

PATIENT
  Age: 39 Year
  Sex: Male

DRUGS (2)
  1. TERBINAFINE HCL [Suspect]
     Indication: NAIL DISORDER
     Dosage: UNK
     Route: 048
  2. FLOXACILLIN SODIUM [Suspect]
     Dosage: UNK
     Route: 048

REACTIONS (3)
  - BLISTER [None]
  - RASH [None]
  - HYPERSENSITIVITY [None]
